FAERS Safety Report 6822064-8 (Version None)
Quarter: 2010Q3

REPORT INFORMATION
  Report Type: 
  Country: None (occurrence: None)
  Receive Date: 20100708
  Receipt Date: 20100601
  Transmission Date: 20110219
  Serious: Yes (Hospitalization, Other)
  Sender: FDA-Public Use
  Company Number: US-BAYER-201019361NA

PATIENT
  Age: 34 Year
  Sex: Female
  Weight: 86 kg

DRUGS (16)
  1. CAMPATH [Suspect]
     Indication: MULTIPLE SCLEROSIS
     Dosage: TOTAL DAILY DOSE: 12 MG
     Route: 042
     Dates: start: 20080512, end: 20080516
  2. CAMPATH [Suspect]
     Dosage: TOTAL DAILY DOSE: 12 MG
     Route: 042
     Dates: start: 20090817, end: 20090819
  3. METHYLPREDNISOLONE [Concomitant]
     Dates: start: 20080512, end: 20080514
  4. METHYLPREDNISOLONE [Concomitant]
     Dates: start: 20090817, end: 20090819
  5. ZOFRAN [Concomitant]
     Dates: start: 20090812
  6. ADVIL LIQUI-GELS [Concomitant]
     Dates: start: 20090817
  7. NUVIGIL [Concomitant]
     Dates: start: 20091116
  8. VALTREX [Concomitant]
     Dosage: TOTAL DAILY DOSE: 1000 MG
     Route: 048
     Dates: start: 20100510, end: 20100516
  9. VALTREX [Concomitant]
     Dates: start: 20091108
  10. METOPROLOL [Concomitant]
     Dosage: APPROXIMATELY 200 MG
  11. PROPYLTHIOURACIL [Concomitant]
     Dosage: TOTAL DAILY DOSE: 600 MG
  12. PROPYLTHIOURACIL [Concomitant]
     Dosage: TOTAL DAILY DOSE: 200 MG
  13. PROPYLTHIOURACIL [Concomitant]
     Dates: start: 20090101
  14. PROPYLTHIOURACIL [Concomitant]
     Dosage: TOTAL DAILY DOSE: 400 MG
     Dates: start: 20090417, end: 20090821
  15. PROPYLTHIOURACIL [Concomitant]
     Dosage: TOTAL DAILY DOSE: 1200 MG
     Dates: start: 20100405, end: 20100430
  16. LEVOTHYROXINE SODIUM [Concomitant]
     Dosage: TOTAL DAILY DOSE: 88 ?G
     Dates: start: 20100514

REACTIONS (3)
  - BASEDOW'S DISEASE [None]
  - NEUTROPENIA [None]
  - THYROTOXIC CRISIS [None]
